FAERS Safety Report 8905406 (Version 2)
Quarter: 2012Q4

REPORT INFORMATION
  Report Type: 
  Country: FI (occurrence: FI)
  Receive Date: 20121109
  Receipt Date: 20121127
  Transmission Date: 20130627
  Serious: Yes (Hospitalization)
  Sender: FDA-Public Use
  Company Number: FI-PFIZER INC-2012279203

PATIENT
  Sex: Male

DRUGS (4)
  1. ORBEOS [Suspect]
     Indication: LIPIDS NOS HIGH
     Dosage: 10 mg, UNK
     Route: 048
     Dates: start: 201202, end: 201205
  2. TEVETEN COMP [Concomitant]
     Dosage: [eprosartan mesilate 600 mg]/ [hydrochlorothiazide 12.5 mg],1x/day
  3. ORLOC [Concomitant]
     Dosage: 5 mg, 1x/day
  4. PRIMASPAN [Concomitant]
     Dosage: 50 mg, 1x/day

REACTIONS (2)
  - Atrioventricular block [Recovered/Resolved]
  - Muscle disorder [Recovered/Resolved]
